FAERS Safety Report 7082676-6 (Version None)
Quarter: 2010Q4

REPORT INFORMATION
  Report Type: 
  Country: None (occurrence: None)
  Receive Date: 20101001
  Receipt Date: 20100826
  Transmission Date: 20110411
  Serious: No
  Sender: FDA-Public Use
  Company Number: 1000015955

PATIENT
  Age: 57 Year
  Sex: Female

DRUGS (11)
  1. BYSTOLIC [Suspect]
     Indication: HYPERTENSION
     Dosage: 5 MG (5 MG, 1 IN 1 D), ORAL, 2.5 MG (2.5 MG, 1 IN 1 D), ORAL
     Route: 048
     Dates: start: 20100301, end: 20100701
  2. BYSTOLIC [Suspect]
     Indication: HYPERTENSION
     Dosage: 5 MG (5 MG, 1 IN 1 D), ORAL, 2.5 MG (2.5 MG, 1 IN 1 D), ORAL
     Route: 048
     Dates: start: 20100701
  3. ADDERALL XR 10 [Concomitant]
  4. DEXEDRINE [Concomitant]
  5. VYVANSE [Concomitant]
  6. KLONOPIN [Concomitant]
  7. XANAX [Concomitant]
  8. ATIVAN [Concomitant]
  9. ZOLOFT [Concomitant]
  10. ALLEGRA [Concomitant]
  11. SERRATIA PEPTIDASE [Concomitant]

REACTIONS (2)
  - FATIGUE [None]
  - WHEEZING [None]
